FAERS Safety Report 5899830-9 (Version None)
Quarter: 2008Q3

REPORT INFORMATION
  Report Type: 
  Country: None (occurrence: None)
  Receive Date: 20080926
  Receipt Date: 20080924
  Transmission Date: 20090109
  Serious: Yes (Other)
  Sender: FDA-Public Use
  Company Number: JP-AVENTIS-200812976JP

PATIENT
  Age: 36 Year
  Sex: Female

DRUGS (1)
  1. ALLEGRA [Suspect]
     Dates: start: 20070201, end: 20070301

REACTIONS (1)
  - LIVER DISORDER [None]
